FAERS Safety Report 12591243 (Version 2)
Quarter: 2016Q3

REPORT INFORMATION
  Report Type: Spontaneous
  Country: US (occurrence: US)
  Receive Date: 20160726
  Receipt Date: 20160727
  Transmission Date: 20161109
  Serious: No
  Sender: FDA-Public Use
  Company Number: US-UNITED THERAPEUTICS-UNT-2016-005087

PATIENT
  Age: 75 Year
  Sex: Female
  Weight: 82.99 kg

DRUGS (2)
  1. WARFARIN [Concomitant]
     Active Substance: WARFARIN
     Indication: PRODUCT USED FOR UNKNOWN INDICATION
  2. REMODULIN [Suspect]
     Active Substance: TREPROSTINIL
     Indication: PULMONARY ARTERIAL HYPERTENSION
     Dosage: 0.041 ?G/KG, CONTINUING
     Route: 058
     Dates: start: 20141229

REACTIONS (8)
  - Abnormal behaviour [Not Recovered/Not Resolved]
  - Agitation [Unknown]
  - Drug dose omission [Unknown]
  - Device issue [Unknown]
  - General physical health deterioration [Unknown]
  - Nervousness [Unknown]
  - Device connection issue [Unknown]
  - Disease progression [Not Recovered/Not Resolved]

NARRATIVE: CASE EVENT DATE: 201603
